FAERS Safety Report 5744274-3 (Version None)
Quarter: 2008Q2

REPORT INFORMATION
  Report Type: 
  Country: None (occurrence: None)
  Receive Date: 20080520
  Receipt Date: 20080509
  Transmission Date: 20081010
  Serious: Yes (Hospitalization)
  Sender: FDA-Public Use
  Company Number: CG-MERCK-0805USA02252

PATIENT
  Sex: Male
  Weight: 60 kg

DRUGS (1)
  1. STROMECTOL [Suspect]
     Indication: ONCHOCERCIASIS
     Route: 048
     Dates: start: 20070713, end: 20070713

REACTIONS (8)
  - ASTHENIA [None]
  - BACK PAIN [None]
  - CHILLS [None]
  - DEPRESSED LEVEL OF CONSCIOUSNESS [None]
  - HEADACHE [None]
  - LOSS OF CONSCIOUSNESS [None]
  - PYREXIA [None]
  - URINARY INCONTINENCE [None]
